FAERS Safety Report 8220740-6 (Version None)
Quarter: 2012Q1

REPORT INFORMATION
  Report Type: 
  Country: None (occurrence: None)
  Receive Date: 20120320
  Receipt Date: 20120306
  Transmission Date: 20120608
  Serious: No
  Sender: FDA-Public Use
  Company Number: US-B.I. PHARMACEUTICALS,INC./RIDGEFIELD-2012-BP-04248BP

PATIENT
  Sex: Male

DRUGS (7)
  1. VITAMIN D [Concomitant]
     Indication: ROUTINE HEALTH MAINTENANCE
  2. TYLENOL PM [Concomitant]
     Indication: INSOMNIA
  3. SPIRIVA [Suspect]
     Indication: CHRONIC OBSTRUCTIVE PULMONARY DISEASE
     Dosage: 18 MCG
     Route: 055
     Dates: start: 20120201
  4. ASCORBIC ACID [Concomitant]
     Indication: ROUTINE HEALTH MAINTENANCE
  5. ASPIRIN [Concomitant]
     Indication: ROUTINE HEALTH MAINTENANCE
  6. HYDROCHLOROTHIAZIDE [Concomitant]
  7. METOPROLOL SUCCINATE [Concomitant]
     Indication: TACHYCARDIA

REACTIONS (1)
  - SOMNOLENCE [None]
